FAERS Safety Report 20666980 (Version 2)
Quarter: 2022Q2

REPORT INFORMATION
  Report Type: Spontaneous
  Country: US (occurrence: US)
  Receive Date: 20220404
  Receipt Date: 20220426
  Transmission Date: 20220721
  Serious: Yes (Other)
  Sender: FDA-Public Use
  Company Number: US-BEH-2022143451

PATIENT
  Age: 14 Year
  Sex: Male

DRUGS (6)
  1. IDELVION [Suspect]
     Active Substance: COAGULATION FACTOR IX RECOMBINANT HUMAN
     Indication: Factor IX deficiency
     Dosage: 4500 INTERNATIONAL UNIT, QW
     Route: 042
     Dates: start: 20211222
  2. IDELVION [Suspect]
     Active Substance: COAGULATION FACTOR IX RECOMBINANT HUMAN
     Indication: Factor IX deficiency
     Dosage: 4500 INTERNATIONAL UNIT, QW
     Route: 042
     Dates: start: 20211222
  3. IDELVION [Suspect]
     Active Substance: COAGULATION FACTOR IX RECOMBINANT HUMAN
     Dosage: 4500 INTERNATIONAL UNIT, PRN
     Route: 042
     Dates: start: 20211222
  4. IDELVION [Suspect]
     Active Substance: COAGULATION FACTOR IX RECOMBINANT HUMAN
     Dosage: 4500 INTERNATIONAL UNIT, PRN
     Route: 042
     Dates: start: 20211222
  5. IDELVION [Suspect]
     Active Substance: COAGULATION FACTOR IX RECOMBINANT HUMAN
     Dosage: 4500 INTERNATIONAL UNIT, QOD, PRN
     Route: 042
     Dates: start: 20220215
  6. IDELVION [Suspect]
     Active Substance: COAGULATION FACTOR IX RECOMBINANT HUMAN
     Dosage: 4500 INTERNATIONAL UNIT, QOD, PRN
     Route: 042
     Dates: start: 20220215

REACTIONS (3)
  - Road traffic accident [Unknown]
  - Head injury [Unknown]
  - Post procedural haemorrhage [Unknown]

NARRATIVE: CASE EVENT DATE: 20220314
